FAERS Safety Report 17092159 (Version 1)
Quarter: 2019Q4

REPORT INFORMATION
  Report Type: Spontaneous
  Country: US (occurrence: US)
  Receive Date: 20191101
  Receipt Date: 20191101
  Transmission Date: 20200122
  Serious: No
  Sender: FDA-Public Use
  Company Number: None

PATIENT
  Age: 73 Year
  Sex: Male

DRUGS (2)
  1. INLYTA [Suspect]
     Active Substance: AXITINIB
     Indication: RENAL CANCER
     Route: 048
  2. KEYTRUDA [Concomitant]
     Active Substance: PEMBROLIZUMAB

REACTIONS (6)
  - Dysphonia [None]
  - Adrenal insufficiency [None]
  - Weight decreased [None]
  - Oral pain [None]
  - Palmar-plantar erythrodysaesthesia syndrome [None]
  - Nail ridging [None]

NARRATIVE: CASE EVENT DATE: 20191101
